FAERS Safety Report 10278525 (Version 2)
Quarter: 2014Q3

REPORT INFORMATION
  Report Type: Spontaneous
  Country: US (occurrence: US)
  Receive Date: 20140704
  Receipt Date: 20140722
  Transmission Date: 20150326
  Serious: No
  Sender: FDA-Public Use
  Company Number: US-009507513-1406USA013291

PATIENT
  Age: 24 Year
  Sex: Female
  Weight: 84.35 kg

DRUGS (1)
  1. NEXPLANON [Suspect]
     Active Substance: ETONOGESTREL
     Indication: CONTRACEPTION
     Dosage: LEFT UPPER OUTER ARM
     Route: 030
     Dates: start: 20140623

REACTIONS (10)
  - Implant site pain [Unknown]
  - Implant site abscess [Unknown]
  - Implant site swelling [Unknown]
  - Adverse event [Unknown]
  - Limb discomfort [Unknown]
  - Implant site erythema [Unknown]
  - Discomfort [Unknown]
  - Incorrect route of drug administration [Unknown]
  - Device deployment issue [Unknown]
  - Implant site inflammation [Unknown]

NARRATIVE: CASE EVENT DATE: 2014
